FAERS Safety Report 24704750 (Version 1)
Quarter: 2024Q4

REPORT INFORMATION
  Report Type: Spontaneous
  Country: US (occurrence: US)
  Receive Date: 20241206
  Receipt Date: 20241206
  Transmission Date: 20250115
  Serious: No
  Sender: PADAGIS
  Company Number: US-PADAGIS-2024PAD01875

PATIENT

DRUGS (1)
  1. MUPIROCIN [Suspect]
     Active Substance: MUPIROCIN
     Indication: Impetigo
     Dosage: UNK
     Route: 065

REACTIONS (1)
  - Therapy partial responder [Unknown]
